FAERS Safety Report 7419769-7 (Version None)
Quarter: 2011Q2

REPORT INFORMATION
  Report Type: 
  Country: None (occurrence: None)
  Receive Date: 20110413
  Receipt Date: 20110413
  Transmission Date: 20111010
  Serious: Yes (Disabling, Other)
  Sender: FDA-Public Use
  Company Number: None

PATIENT
  Sex: Male
  Weight: 84.8226 kg

DRUGS (1)
  1. LITHIUM CARBONATE [Suspect]
     Indication: GLOMERULAR FILTRATION RATE
     Dosage: 300 MG 1 4 TIMES DAY ORAL
     Route: 048
     Dates: start: 19860101

REACTIONS (2)
  - RENAL FAILURE [None]
  - PITUITARY TUMOUR BENIGN [None]
